FAERS Safety Report 22104326 (Version 5)
Quarter: 2023Q2

REPORT INFORMATION
  Report Type: Report from Study
  Country: CO (occurrence: CO)
  Receive Date: 20230316
  Receipt Date: 20230529
  Transmission Date: 20230721
  Serious: Yes (Hospitalization, Other)
  Sender: FDA-Public Use
  Company Number: CO-ABBVIE-4343187

PATIENT
  Age: 74 Year
  Sex: Male
  Weight: 52 kg

DRUGS (2)
  1. VENCLEXTA [Suspect]
     Active Substance: VENETOCLAX
     Indication: Acute myeloid leukaemia
     Dosage: 400 MILLIGRAM?FORM STRENGTH 100 MG
     Route: 048
     Dates: start: 20220506, end: 20230523
  2. AZACITIDINE [Suspect]
     Active Substance: AZACITIDINE
     Indication: Acute myeloid leukaemia
     Dosage: DOSE REDUCED
     Route: 065
     Dates: start: 20230415, end: 20230415

REACTIONS (16)
  - Platelet disorder [Recovered/Resolved]
  - Toxicity to various agents [Recovering/Resolving]
  - Laboratory test abnormal [Recovering/Resolving]
  - Red blood cell abnormality [Recovered/Resolved]
  - Weight decreased [Recovering/Resolving]
  - Hospitalisation [Unknown]
  - Hepatitis [Recovering/Resolving]
  - Arthralgia [Unknown]
  - Platelet count decreased [Recovered/Resolved]
  - Pyrexia [Recovered/Resolved]
  - Jaundice [Unknown]
  - Pain in extremity [Unknown]
  - Blood bilirubin increased [Unknown]
  - Immunodeficiency [Recovered/Resolved]
  - Haemoglobin decreased [Recovered/Resolved]
  - Transaminases increased [Unknown]

NARRATIVE: CASE EVENT DATE: 20230201
